FAERS Safety Report 8583313-1 (Version None)
Quarter: 2012Q3

REPORT INFORMATION
  Report Type: 
  Country: None (occurrence: None)
  Receive Date: 20120809
  Receipt Date: 20120801
  Transmission Date: 20120928
  Serious: Yes (Hospitalization)
  Sender: FDA-Public Use
  Company Number: US-ABBOTT-12P-163-0963817-00

PATIENT
  Sex: Female

DRUGS (1)
  1. DEPAKOTE [Suspect]
     Indication: PRODUCT USED FOR UNKNOWN INDICATION

REACTIONS (5)
  - ALOPECIA [None]
  - LOSS OF EMPLOYMENT [None]
  - HOSPITALISATION [None]
  - LOSS OF CONSCIOUSNESS [None]
  - WEIGHT INCREASED [None]
